FAERS Safety Report 20060252 (Version 1)
Quarter: 2021Q4

REPORT INFORMATION
  Report Type: Report from Study
  Country: DE (occurrence: DE)
  Receive Date: 20211111
  Receipt Date: 20211111
  Transmission Date: 20220303
  Serious: Yes (Other)
  Sender: FDA-Public Use
  Company Number: DE-ABBVIE-21K-062-4105132-00

PATIENT
  Sex: Male
  Weight: 123 kg

DRUGS (4)
  1. HUMIRA [Suspect]
     Active Substance: ADALIMUMAB
     Indication: Hidradenitis
     Route: 058
     Dates: start: 20210506
  2. HUMIRA [Suspect]
     Active Substance: ADALIMUMAB
     Indication: Psoriasis
  3. LEVOTHYROXINE SODIUM [Concomitant]
     Active Substance: LEVOTHYROXINE SODIUM
     Indication: Hypothyroidism
     Route: 048
     Dates: start: 2015
  4. TIANEPTINE [Concomitant]
     Active Substance: TIANEPTINE
     Indication: Depression
     Route: 048

REACTIONS (5)
  - Pericardial cyst [Not Recovered/Not Resolved]
  - Cardiac disorder [Unknown]
  - Electrocardiogram T wave inversion [Not Recovered/Not Resolved]
  - Pruritus [Not Recovered/Not Resolved]
  - Hidradenitis [Not Recovered/Not Resolved]

NARRATIVE: CASE EVENT DATE: 20210101
